FAERS Safety Report 24872483 (Version 1)
Quarter: 2025Q1

REPORT INFORMATION
  Report Type: Spontaneous
  Country: TW (occurrence: TW)
  Receive Date: 20250122
  Receipt Date: 20250122
  Transmission Date: 20250408
  Serious: Yes (Death, Hospitalization)
  Sender: STRIDES
  Company Number: TW-STRIDES ARCOLAB LIMITED-2025SP000923

PATIENT
  Age: 71 Year
  Sex: Male

DRUGS (2)
  1. VANCOMYCIN [Suspect]
     Active Substance: VANCOMYCIN
     Indication: Enterococcal infection
     Route: 065
  2. DORIPENEM [Concomitant]
     Active Substance: DORIPENEM
     Indication: Evidence based treatment
     Route: 065

REACTIONS (3)
  - Disease progression [Fatal]
  - Pathogen resistance [Fatal]
  - Off label use [Unknown]
